FAERS Safety Report 6045037-4 (Version None)
Quarter: 2009Q1

REPORT INFORMATION
  Report Type: 
  Country: None (occurrence: None)
  Receive Date: 20090116
  Receipt Date: 20090116
  Transmission Date: 20090719
  Serious: No
  Sender: FDA-Public Use
  Company Number: None

PATIENT
  Age: 55 Year
  Weight: 96.1626 kg

DRUGS (2)
  1. AROMASIN [Suspect]
     Indication: AROMATASE INHIBITION THERAPY
     Dosage: 25 MG DAILY PO
     Route: 048
  2. AROMASIN [Suspect]
     Indication: BREAST CANCER
     Dosage: 25 MG DAILY PO
     Route: 048

REACTIONS (9)
  - ARTHRALGIA [None]
  - ASTHENIA [None]
  - BALANCE DISORDER [None]
  - CARPAL TUNNEL SYNDROME [None]
  - FALL [None]
  - FATIGUE [None]
  - INSOMNIA [None]
  - NEUROPATHY PERIPHERAL [None]
  - POSTURE ABNORMAL [None]
